FAERS Safety Report 21327900 (Version 2)
Quarter: 2024Q3

REPORT INFORMATION
  Report Type: Spontaneous
  Country: GB (occurrence: GB)
  Receive Date: 20220913
  Receipt Date: 20240715
  Transmission Date: 20241016
  Serious: Yes (Death, Hospitalization, Other)
  Sender: AUROBINDO
  Company Number: GB-EMA-20110103-slalp-122335152

PATIENT
  Age: 18 Year
  Sex: Female
  Weight: 55 kg

DRUGS (7)
  1. ACYCLOVIR [Suspect]
     Active Substance: ACYCLOVIR
     Indication: Meningitis
     Dosage: UNK
     Route: 065
  2. PHENYTOIN [Suspect]
     Active Substance: PHENYTOIN
     Indication: Seizure
     Dosage: UNK
     Route: 065
  3. PIPERACILLIN AND TAZOBACTAM [Suspect]
     Active Substance: PIPERACILLIN SODIUM\TAZOBACTAM SODIUM
     Indication: Lower respiratory tract infection
     Dosage: UNK
     Route: 065
  4. CEFOTAXIME [Suspect]
     Active Substance: CEFOTAXIME SODIUM
     Indication: Meningitis
     Dosage: UNK
     Route: 065
  5. GENTAMICIN [Suspect]
     Active Substance: GENTAMICIN
     Indication: Lower respiratory tract infection
     Dosage: UNK
     Route: 065
  6. PIPERACILLIN SODIUM\TAZOBACTAM SODIUM [Suspect]
     Active Substance: PIPERACILLIN SODIUM\TAZOBACTAM SODIUM
     Indication: Lower respiratory tract infection
     Dosage: UNK
     Route: 065
  7. PREDNISOLONE [Concomitant]
     Active Substance: PREDNISOLONE
     Indication: Product used for unknown indication
     Dosage: UNK
     Route: 065

REACTIONS (4)
  - Toxic epidermal necrolysis [Fatal]
  - Multiple organ dysfunction syndrome [Fatal]
  - Sepsis [Fatal]
  - Off label use [Unknown]

NARRATIVE: CASE EVENT DATE: 20081101
